FAERS Safety Report 7469283-8 (Version None)
Quarter: 2011Q2

REPORT INFORMATION
  Report Type: 
  Country: None (occurrence: None)
  Receive Date: 20110429
  Receipt Date: 20110413
  Transmission Date: 20111010
  Serious: Yes (Hospitalization, Other)
  Sender: FDA-Public Use
  Company Number: 2011040075

PATIENT
  Age: 49 Year
  Sex: Female

DRUGS (3)
  1. ANTIDEPRESSANT [Concomitant]
  2. ZOLPIDEM [Suspect]
     Indication: INSOMNIA
     Dosage: (10 MG, DAILY); (1500 MG, DAILY)
  3. ZOLPIDEM [Suspect]
     Indication: MENTAL DISORDER
     Dosage: (10 MG, DAILY); (1500 MG, DAILY)

REACTIONS (5)
  - MENTAL DISORDER [None]
  - FAMILY STRESS [None]
  - INTENTIONAL DRUG MISUSE [None]
  - DRUG WITHDRAWAL CONVULSIONS [None]
  - DRUG DEPENDENCE [None]
